FAERS Safety Report 7444172-3 (Version None)
Quarter: 2011Q2

REPORT INFORMATION
  Report Type: 
  Country: None (occurrence: None)
  Receive Date: 20110429
  Receipt Date: 20110112
  Transmission Date: 20111010
  Serious: Yes (Other)
  Sender: FDA-Public Use
  Company Number: US-BAYER-201033327NA

PATIENT
  Age: 33 Year
  Sex: Female
  Weight: 88.435 kg

DRUGS (6)
  1. PREVACID [Concomitant]
     Indication: GASTROOESOPHAGEAL REFLUX DISEASE
     Dosage: 30 MG, QD
     Route: 048
  2. ZANTAC [Concomitant]
     Dosage: UNK
  3. YAZ [Suspect]
     Route: 048
     Dates: start: 20050407
  4. OCELLA [Suspect]
     Route: 048
     Dates: start: 20050407
  5. YASMIN [Suspect]
     Dosage: UNK UNK, UNK
     Route: 048
     Dates: start: 20020701, end: 20080701
  6. LORATADINE [Concomitant]
     Dosage: 10 MG, QD
     Route: 048

REACTIONS (6)
  - CHOLECYSTITIS [None]
  - CHOLELITHIASIS [None]
  - GALLBLADDER INJURY [None]
  - PAIN [None]
  - EMOTIONAL DISTRESS [None]
  - SCAR [None]
